FAERS Safety Report 4478148-5 (Version None)
Quarter: 2004Q4

REPORT INFORMATION
  Report Type: 
  Country: None (occurrence: None)
  Receive Date: 20041014
  Receipt Date: 20040929
  Transmission Date: 20050328
  Serious: Yes (Life-Threatening, Hospitalization)
  Sender: FDA-Public Use
  Company Number: 2004-00586

PATIENT
  Age: 72 Year
  Sex: Male
  Weight: 71.7 kg

DRUGS (6)
  1. VELCADE [Suspect]
     Indication: MULTIPLE MYELOMA
     Dosage: IV BOLUS
     Route: 040
     Dates: start: 20040902, end: 20040906
  2. TAZOCIN (PIPERACILLIN SODIUM, TAZOBACTAM SODIUM) [Concomitant]
  3. LANSOPRAZOLE [Concomitant]
  4. ADCAL-D3 (COLECALCIFEROL, CALCIUM CARBONATE) [Concomitant]
  5. CLODRONATE DISODIUM (CLODRONATE DISODIUM) [Concomitant]
  6. METFORMIN HCL [Concomitant]

REACTIONS (8)
  - BLOOD CREATININE INCREASED [None]
  - CEREBELLAR SYNDROME [None]
  - CSF PROTEIN ABNORMAL [None]
  - DIZZINESS [None]
  - HYPONATRAEMIA [None]
  - NERVOUS SYSTEM DISORDER [None]
  - ORTHOSTATIC HYPOTENSION [None]
  - PNEUMONIA [None]
